FAERS Safety Report 7555694-9 (Version None)
Quarter: 2011Q2

REPORT INFORMATION
  Report Type: 
  Country: None (occurrence: None)
  Receive Date: 20110617
  Receipt Date: 20110608
  Transmission Date: 20111010
  Serious: Yes (Other)
  Sender: FDA-Public Use
  Company Number: US-MERCK-0906USA04969

PATIENT
  Age: 52 Year
  Sex: Female

DRUGS (2)
  1. FOSAMAX [Suspect]
     Route: 048
     Dates: start: 19930101, end: 20070107
  2. FOSAMAX [Suspect]
     Indication: OSTEOPOROSIS
     Route: 048
     Dates: start: 19930101, end: 20070107

REACTIONS (6)
  - NON-HODGKIN'S LYMPHOMA [None]
  - OSTEONECROSIS OF JAW [None]
  - BONE LOSS [None]
  - MENISCUS LESION [None]
  - TOOTH FRACTURE [None]
  - GINGIVAL INFECTION [None]
